FAERS Safety Report 7437689-9 (Version None)
Quarter: 2011Q2

REPORT INFORMATION
  Report Type: 
  Country: None (occurrence: None)
  Receive Date: 20110426
  Receipt Date: 20110420
  Transmission Date: 20111010
  Serious: Yes (Hospitalization)
  Sender: FDA-Public Use
  Company Number: DE-ABBOTT-11P-062-0720739-00

PATIENT
  Sex: Male
  Weight: 96 kg

DRUGS (6)
  1. TRUVADA [Concomitant]
     Indication: PRODUCT USED FOR UNKNOWN INDICATION
     Dosage: 300MG/200MG DAILY
  2. KALETRA [Suspect]
     Indication: HIV INFECTION
     Dosage: 133MG/33MG TWICE DAILY
  3. RETROVIR [Concomitant]
     Indication: PRODUCT USED FOR UNKNOWN INDICATION
  4. CLEXANE [Concomitant]
     Indication: PRODUCT USED FOR UNKNOWN INDICATION
     Route: 058
  5. IBU [Concomitant]
     Indication: PRODUCT USED FOR UNKNOWN INDICATION
  6. PANTOZOL [Concomitant]
     Indication: PRODUCT USED FOR UNKNOWN INDICATION

REACTIONS (4)
  - BACK PAIN [None]
  - SPINAL CORD DISORDER [None]
  - BENIGN NEOPLASM OF SPINAL CORD [None]
  - TETHERED CORD SYNDROME [None]
